FAERS Safety Report 12674236 (Version 1)
Quarter: 2016Q3

REPORT INFORMATION
  Report Type: Report from Study
  Country: TH (occurrence: TH)
  Receive Date: 20160822
  Receipt Date: 20160822
  Transmission Date: 20161109
  Serious: Yes (Hospitalization)
  Sender: FDA-Public Use
  Company Number: TH-EISAI MEDICAL RESEARCH-EC-2016-019585

PATIENT
  Age: 45 Year
  Sex: Female

DRUGS (6)
  1. AMLODIPINE [Concomitant]
     Active Substance: AMLODIPINE BESYLATE
  2. LENVATINIB [Suspect]
     Active Substance: LENVATINIB
     Indication: THYROID CANCER
     Route: 048
     Dates: start: 20160301, end: 20160525
  3. ATENOLOL. [Concomitant]
     Active Substance: ATENOLOL
  4. LOSARTAN. [Concomitant]
     Active Substance: LOSARTAN
  5. LENVATINIB [Suspect]
     Active Substance: LENVATINIB
     Route: 048
     Dates: start: 20160526, end: 20160731
  6. LENVATINIB [Suspect]
     Active Substance: LENVATINIB
     Route: 048
     Dates: start: 20160805

REACTIONS (1)
  - Abscess neck [Recovering/Resolving]

NARRATIVE: CASE EVENT DATE: 20160711
